FAERS Safety Report 5087741-0 (Version None)
Quarter: 2006Q3

REPORT INFORMATION
  Report Type: 
  Country: None (occurrence: None)
  Receive Date: 20060824
  Receipt Date: 20060821
  Transmission Date: 20061208
  Serious: Yes (Life-Threatening, Hospitalization)
  Sender: FDA-Public Use
  Company Number: 2006GB01464

PATIENT
  Age: 72 Year
  Sex: Male

DRUGS (12)
  1. OMEPRAZOLE [Suspect]
     Route: 048
     Dates: start: 20060601
  2. AMOXICILLIN [Suspect]
     Route: 048
  3. CARBOPLATIN [Suspect]
     Dosage: 4 DOSES PER CYCLE
     Route: 065
     Dates: start: 20060201
  4. GEMCITABINE [Suspect]
     Dosage: 4 DOSES PER CYCLE
     Route: 065
     Dates: start: 20060201
  5. SIMVASTATIN [Suspect]
     Indication: BLOOD CHOLESTEROL INCREASED
     Route: 048
  6. ASPIRIN [Concomitant]
     Indication: CARDIOVASCULAR EVENT PROPHYLAXIS
     Route: 065
  7. ATENOLOL [Concomitant]
     Indication: HYPERTENSION
     Route: 065
  8. CHLORDIAZEPOXIDE [Concomitant]
     Route: 065
     Dates: start: 20060518
  9. CIPROFLOXACIN [Concomitant]
     Indication: PROPHYLAXIS OF NAUSEA AND VOMITING
     Dosage: 3 DOSES PER CYCLE
     Route: 065
  10. CLARITHROMYCIN [Concomitant]
     Dosage: 3 DOSES PER CYCLE
     Route: 065
  11. CORACTEN XL [Concomitant]
     Indication: HYPERTENSION
     Route: 065
  12. GRANISETRON  HCL [Concomitant]
     Route: 048
     Dates: start: 20060401

REACTIONS (2)
  - RENAL FAILURE ACUTE [None]
  - RHABDOMYOLYSIS [None]
